FAERS Safety Report 25424043 (Version 1)
Quarter: 2025Q2

REPORT INFORMATION
  Report Type: Spontaneous
  Country: US (occurrence: None)
  Receive Date: 20250610
  Receipt Date: 20250610
  Transmission Date: 20250717
  Serious: Yes (Disabling)
  Sender: FDA-CTU
  Company Number: None

PATIENT
  Age: 37 Year
  Sex: Female
  Weight: 76.5 kg

DRUGS (12)
  1. METOCLOPRAMIDE [Suspect]
     Active Substance: METOCLOPRAMIDE
     Indication: Nausea
     Dosage: OTHER QUANTITY : 28 TABLET(S);?FREQUENCY : EVERY 6 HOURS;?
     Route: 048
     Dates: start: 20241231, end: 20250117
  2. METOCLOPRAMIDE [Suspect]
     Active Substance: METOCLOPRAMIDE
     Indication: Vomiting
  3. METOCLOPRAMIDE [Suspect]
     Active Substance: METOCLOPRAMIDE
     Indication: Gastritis
  4. Synthroid 0.150 mcg [Concomitant]
  5. BUPROPION [Concomitant]
     Active Substance: BUPROPION
  6. DEXTROAMPHETAMINE SACCHARATE, AMPHETAMINE ASPARTATE, DEXTROAMPHETAMINE [Concomitant]
     Active Substance: AMPHETAMINE ASPARTATE\AMPHETAMINE SULFATE\DEXTROAMPHETAMINE SACCHARATE\DEXTROAMPHETAMINE SULFATE
  7. VYVANSE [Concomitant]
     Active Substance: LISDEXAMFETAMINE DIMESYLATE
  8. QUETIAPINE [Concomitant]
     Active Substance: QUETIAPINE
  9. SAPHRIS [Concomitant]
     Active Substance: ASENAPINE MALEATE
  10. Diclofenac 10mg [Concomitant]
  11. Allegra allergy medication [Concomitant]
  12. Benadryl allergy medication [Concomitant]

REACTIONS (1)
  - Illness [None]

NARRATIVE: CASE EVENT DATE: 20241231
